FAERS Safety Report 17593017 (Version 2)
Quarter: 2020Q2

REPORT INFORMATION
  Report Type: Spontaneous
  Country: JP (occurrence: JP)
  Receive Date: 20200327
  Receipt Date: 20200409
  Transmission Date: 20200713
  Serious: Yes (Other)
  Sender: FDA-Public Use
  Company Number: NVSJ2020JP003828

PATIENT
  Age: 11 Year
  Sex: Female

DRUGS (3)
  1. ELTROMBOPAG [Suspect]
     Active Substance: ELTROMBOPAG
     Dosage: UNK
     Route: 065
  2. ELTROMBOPAG [Suspect]
     Active Substance: ELTROMBOPAG
     Indication: IMMUNE THROMBOCYTOPENIA
     Dosage: UNK
     Route: 065
  3. ROMIPLOSTIM [Concomitant]
     Active Substance: ROMIPLOSTIM
     Indication: IMMUNE THROMBOCYTOPENIA
     Dosage: UNK
     Route: 065

REACTIONS (5)
  - Back pain [Recovered/Resolved]
  - Platelet count decreased [Recovered/Resolved]
  - Pain in extremity [Recovered/Resolved]
  - Spinal subdural haematoma [Recovered/Resolved]
  - Cerebral haemorrhage [Recovered/Resolved]
